FAERS Safety Report 5850274-5 (Version None)
Quarter: 2008Q3

REPORT INFORMATION
  Report Type: 
  Country: None (occurrence: None)
  Receive Date: 20080819
  Receipt Date: 20080815
  Transmission Date: 20090109
  Serious: Yes (Death, Hospitalization)
  Sender: FDA-Public Use
  Company Number: PHEH2008US00496

PATIENT
  Sex: Male
  Weight: 86.8 kg

DRUGS (17)
  1. NEORAL [Suspect]
     Indication: IMMUNOSUPPRESSION
     Dosage: 300 MG, BID
     Route: 048
     Dates: start: 20071201
  2. AGGRENOX [Concomitant]
     Dosage: 25/200 MG, BID
  3. ATENOLOL [Concomitant]
     Indication: BLOOD PRESSURE
     Dosage: 25 MG, QD
     Route: 048
  4. BACTRIM [Concomitant]
     Dosage: 180 MG, QD
     Route: 048
  5. CELLCEPT [Concomitant]
     Indication: RENAL TRANSPLANT
     Dosage: 750 MG, BID
     Route: 048
  6. CELLCEPT [Concomitant]
     Indication: PANCREAS TRANSPLANT
  7. CATAPRES-TTS-2 [Concomitant]
     Indication: BLOOD PRESSURE
     Dosage: 0.2 MG, QW
     Route: 062
  8. COLACE [Concomitant]
     Dosage: 100 MG, TID
     Route: 048
  9. COZAAR [Concomitant]
     Indication: BLOOD PRESSURE
     Dosage: 100 MG, QD
     Route: 048
  10. MINOXIDIL [Concomitant]
     Indication: BLOOD PRESSURE
     Dosage: 10 MG, BID
     Route: 048
  11. MIRALAX [Concomitant]
     Indication: CONSTIPATION
     Dosage: UNK
     Route: 048
  12. NORVASC [Concomitant]
     Indication: BLOOD PRESSURE
     Dosage: 10 MG, BID
  13. PREDNISONE TAB [Concomitant]
     Indication: IMMUNOSUPPRESSION
     Dosage: 1 MG, QD
     Route: 048
  14. PROTONIX [Concomitant]
     Indication: GASTROOESOPHAGEAL REFLUX DISEASE
     Dosage: 40 MG, QD
     Route: 048
  15. REGLAN [Concomitant]
     Indication: IMPAIRED GASTRIC EMPTYING
     Dosage: 5 MG, QID
     Route: 048
  16. VALCYTE [Concomitant]
     Indication: RENAL TRANSPLANT
     Dosage: 450 UNK, QD
     Route: 048
  17. VALCYTE [Concomitant]
     Indication: PANCREAS TRANSPLANT

REACTIONS (3)
  - PYREXIA [None]
  - SEPSIS [None]
  - STENT REMOVAL [None]
